FAERS Safety Report 4730339-1 (Version None)
Quarter: 2005Q3

REPORT INFORMATION
  Report Type: 
  Country: None (occurrence: None)
  Receive Date: 20050725
  Receipt Date: 20050419
  Transmission Date: 20060218
  Serious: No
  Sender: FDA-Public Use
  Company Number: USA050495514

PATIENT
  Age: 8 Year
  Sex: Male
  Weight: 21 kg

DRUGS (2)
  1. STRATTERA [Suspect]
     Indication: ATTENTION DEFICIT/HYPERACTIVITY DISORDER
     Dosage: 40 MG DAY
     Dates: start: 20030101
  2. DAILY VITAMINS [Concomitant]

REACTIONS (7)
  - ABDOMINAL PAIN UPPER [None]
  - BODY HEIGHT BELOW NORMAL [None]
  - HEADACHE [None]
  - HEART RATE INCREASED [None]
  - LETHARGY [None]
  - PRESCRIBED OVERDOSE [None]
  - UNDERWEIGHT [None]
